FAERS Safety Report 11220582 (Version 4)
Quarter: 2015Q3

REPORT INFORMATION
  Report Type: Spontaneous
  Country: JP (occurrence: JP)
  Receive Date: 20150626
  Receipt Date: 20150722
  Transmission Date: 20151125
  Serious: Yes (Other)
  Sender: FDA-Public Use
  Company Number: JP-009507513-1506JPN010570

PATIENT
  Age: 44 Year
  Sex: Female

DRUGS (1)
  1. REMERON [Suspect]
     Active Substance: MIRTAZAPINE
     Indication: MAJOR DEPRESSION
     Dosage: DAILY DOSE UNKNOWN
     Route: 048

REACTIONS (3)
  - Limb discomfort [Unknown]
  - Activation syndrome [Unknown]
  - Pain [Unknown]
